FAERS Safety Report 13992339 (Version 1)
Quarter: 2017Q3

REPORT INFORMATION
  Report Type: Spontaneous
  Country: US (occurrence: US)
  Receive Date: 20170920
  Receipt Date: 20170920
  Transmission Date: 20171128
  Serious: No
  Sender: FDA-Public Use
  Company Number: US-JNJFOC-20170724588

PATIENT
  Age: 82 Year
  Sex: Female
  Weight: 49.9 kg

DRUGS (6)
  1. NIZORAL A-D [Suspect]
     Active Substance: KETOCONAZOLE
     Indication: PRURITUS
     Dosage: STRENGTH 1 PERCENT
     Route: 061
  2. Q10 [Concomitant]
     Indication: ROUTINE HEALTH MAINTENANCE
     Route: 065
  3. ROGAINE [Suspect]
     Active Substance: MINOXIDIL
     Indication: PRODUCT USED FOR UNKNOWN INDICATION
     Route: 065
  4. VITAMIN D3 [Concomitant]
     Active Substance: CHOLECALCIFEROL
     Indication: ROUTINE HEALTH MAINTENANCE
     Route: 065
  5. NIZORAL A-D [Suspect]
     Active Substance: KETOCONAZOLE
     Indication: DANDRUFF
     Dosage: STRENGTH 1 PERCENT
     Route: 061
  6. CALCIUM [Concomitant]
     Active Substance: CALCIUM
     Dosage: 3-6 TABLETS
     Route: 065

REACTIONS (2)
  - Hair colour changes [Unknown]
  - Drug ineffective [Unknown]
